FAERS Safety Report 6384373-9 (Version None)
Quarter: 2009Q3

REPORT INFORMATION
  Report Type: 
  Country: None (occurrence: None)
  Receive Date: 20090929
  Receipt Date: 20090915
  Transmission Date: 20100115
  Serious: Yes (Hospitalization)
  Sender: FDA-Public Use
  Company Number: 2009257223

PATIENT
  Age: 74 Year
  Sex: Female

DRUGS (3)
  1. DALTEPARIN SODIUM [Suspect]
     Dates: start: 20090708
  2. CISPLATIN [Suspect]
  3. VINORELBINE (VINORELBINE) [Suspect]

REACTIONS (2)
  - NAUSEA [None]
  - VOMITING [None]
